FAERS Safety Report 8178678-9 (Version None)
Quarter: 2012Q1

REPORT INFORMATION
  Report Type: 
  Country: None (occurrence: None)
  Receive Date: 20120301
  Receipt Date: 20120221
  Transmission Date: 20120608
  Serious: Yes (Other)
  Sender: FDA-Public Use
  Company Number: JP-ASTRAZENECA-2012SE10565

PATIENT
  Age: 78 Year
  Sex: Female

DRUGS (6)
  1. SEROQUEL [Concomitant]
     Route: 048
     Dates: start: 20060101
  2. ALMARL [Concomitant]
     Route: 048
     Dates: start: 20060101
  3. CANDESARTAN CILEXETIL [Concomitant]
     Route: 048
     Dates: start: 20060101
  4. CRESTOR [Suspect]
     Indication: HYPERCHOLESTEROLAEMIA
     Route: 048
     Dates: start: 20111209, end: 20120126
  5. TOKISHAKUYAKUSAN [Concomitant]
     Route: 048
     Dates: start: 20111209
  6. ACETAMINOPHEN [Concomitant]
     Dosage: AS REQUIRED
     Route: 048
     Dates: start: 20060101

REACTIONS (1)
  - RENAL DISORDER [None]
